FAERS Safety Report 21991396 (Version 2)
Quarter: 2023Q1

REPORT INFORMATION
  Report Type: Spontaneous
  Country: GB (occurrence: GB)
  Receive Date: 20230214
  Receipt Date: 20230223
  Transmission Date: 20230418
  Serious: Yes (Other)
  Sender: FDA-Public Use
  Company Number: GB-ROCHE-3277831

PATIENT
  Sex: Male

DRUGS (16)
  1. BENDAMUSTINE [Suspect]
     Active Substance: BENDAMUSTINE
     Indication: Diffuse large B-cell lymphoma
     Dosage: (3RD LINE THERAPY WITH POLA-BR)
     Route: 042
     Dates: start: 20210914, end: 20211006
  2. BENDAMUSTINE [Suspect]
     Active Substance: BENDAMUSTINE
     Dosage: (5TH LINE THERAPY WITH POLA-BR)
     Route: 042
     Dates: start: 20221206, end: 20230118
  3. CISPLATIN [Suspect]
     Active Substance: CISPLATIN
     Indication: Diffuse large B-cell lymphoma
     Dosage: (2ND LINE THERAPY WITH RDHAP)
     Route: 065
     Dates: start: 20210616, end: 20210717
  4. DEXAMETHASONE [Suspect]
     Active Substance: DEXAMETHASONE
     Indication: Diffuse large B-cell lymphoma
     Dosage: (2ND LINE THERAPY WITH RDHAP)
     Route: 065
     Dates: start: 20210616, end: 20210717
  5. CYCLOPHOSPHAMIDE [Suspect]
     Active Substance: CYCLOPHOSPHAMIDE
     Indication: Diffuse large B-cell lymphoma
     Dosage: 1ST LINE THERAPY WITH R-CHOP)
     Route: 065
     Dates: start: 20210322, end: 20210530
  6. CYTARABINE [Suspect]
     Active Substance: CYTARABINE
     Indication: Diffuse large B-cell lymphoma
     Dosage: 2ND LINE THERAPY WITH RDHAP
     Route: 065
     Dates: start: 20210616, end: 20210717
  7. EPIRUBICIN [Suspect]
     Active Substance: EPIRUBICIN
     Indication: Diffuse large B-cell lymphoma
     Dosage: (1ST LINE THERAPY WITH R-CHOP)
     Route: 065
     Dates: start: 20210322, end: 20210530
  8. ONCOVIN [Suspect]
     Active Substance: VINCRISTINE SULFATE
     Indication: Diffuse large B-cell lymphoma
     Dosage: 1ST LINE THERAPY WITH R-CHOP)
     Route: 065
     Dates: start: 20210322, end: 20210530
  9. POLATUZUMAB VEDOTIN [Suspect]
     Active Substance: POLATUZUMAB VEDOTIN
     Indication: Diffuse large B-cell lymphoma
     Dosage: 5TH LINE THERAPY WITH POLA-BR
     Route: 065
     Dates: start: 20221206, end: 20230118
  10. POLATUZUMAB VEDOTIN [Suspect]
     Active Substance: POLATUZUMAB VEDOTIN
     Dosage: 3RD LINE THERAPY WITH POLA-BR
     Route: 065
     Dates: start: 20210914, end: 20211006
  11. PREDNISONE [Suspect]
     Active Substance: PREDNISONE
     Indication: Diffuse large B-cell lymphoma
     Dosage: 1ST LINE THERAPY WITH R-CHOP)
     Route: 065
     Dates: start: 20210322, end: 20210530
  12. RITUXIMAB [Suspect]
     Active Substance: RITUXIMAB
     Indication: Diffuse large B-cell lymphoma
     Dosage: 5TH LINE THERAPY WITH POLA-BR
     Route: 065
     Dates: start: 20221206, end: 20230118
  13. RITUXIMAB [Suspect]
     Active Substance: RITUXIMAB
     Dosage: 3RD LINE THERAPY WITH POLA-BR
     Route: 065
     Dates: start: 20210914, end: 20211006
  14. RITUXIMAB [Suspect]
     Active Substance: RITUXIMAB
     Dosage: 2ND LINE THERAPY WITH RDHAP
     Route: 065
     Dates: start: 20210616, end: 20210717
  15. RITUXIMAB [Suspect]
     Active Substance: RITUXIMAB
     Dosage: 1ST LINE THERAPY WITH R-CHOP)
     Route: 065
     Dates: start: 20210322, end: 20210530
  16. GENETICALLY-MODIFIED AUTOLOGOUS T CELLS NOS [Suspect]
     Active Substance: GENETICALLY-MODIFIED AUTOLOGOUS T CELLS NOS
     Indication: Diffuse large B-cell lymphoma
     Dosage: 4TH LINE THERAPY WITH CAR-T)
     Route: 065
     Dates: start: 20211019, end: 20211019

REACTIONS (2)
  - Malignant neoplasm progression [Unknown]
  - Off label use [Unknown]
